FAERS Safety Report 25433486 (Version 1)
Quarter: 2025Q2

REPORT INFORMATION
  Report Type: Spontaneous
  Country: CN (occurrence: CN)
  Receive Date: 20250613
  Receipt Date: 20250613
  Transmission Date: 20250716
  Serious: Yes (Hospitalization, Other)
  Sender: RANBAXY
  Company Number: CN-SUN PHARMACEUTICAL INDUSTRIES INC-2025R1-511890

PATIENT
  Age: 20 Day
  Sex: Male

DRUGS (2)
  1. PROPAFENONE [Suspect]
     Active Substance: PROPAFENONE
     Indication: Supraventricular tachycardia
     Route: 065
  2. AMIODARONE [Suspect]
     Active Substance: AMIODARONE
     Indication: Supraventricular tachycardia
     Route: 065

REACTIONS (1)
  - Treatment failure [Unknown]
